FAERS Safety Report 12244325 (Version 1)
Quarter: 2016Q2

REPORT INFORMATION
  Report Type: Spontaneous
  Country: US (occurrence: US)
  Receive Date: 20160407
  Receipt Date: 20160407
  Transmission Date: 20160815
  Serious: Yes (Other)
  Sender: FDA-Public Use
  Company Number: US-ROCHE-1737718

PATIENT
  Age: 72 Year
  Sex: Female

DRUGS (3)
  1. LUCENTIS [Suspect]
     Active Substance: RANIBIZUMAB
     Indication: DRY AGE-RELATED MACULAR DEGENERATION
     Route: 065
     Dates: start: 201409
  2. LUCENTIS [Suspect]
     Active Substance: RANIBIZUMAB
     Route: 065
     Dates: start: 201412
  3. LUCENTIS [Suspect]
     Active Substance: RANIBIZUMAB
     Route: 065
     Dates: start: 20160322

REACTIONS (6)
  - Heart rate decreased [Unknown]
  - Sluggishness [Unknown]
  - Malaise [Unknown]
  - Hypertension [Recovered/Resolved]
  - Eye pain [Unknown]
  - Seizure [Unknown]

NARRATIVE: CASE EVENT DATE: 20160322
